FAERS Safety Report 15289713 (Version 3)
Quarter: 2019Q3

REPORT INFORMATION
  Report Type: Report from Study
  Country: AU (occurrence: AU)
  Receive Date: 20180817
  Receipt Date: 20190814
  Transmission Date: 20191004
  Serious: Yes (Hospitalization, Other)
  Sender: FDA-Public Use
  Company Number: AU-SA-2016SA147483

PATIENT
  Age: 45 Year
  Sex: Male

DRUGS (16)
  1. CETIRIZINE [Concomitant]
     Active Substance: CETIRIZINE HYDROCHLORIDE
     Dosage: 80 MG,QD
     Route: 048
     Dates: start: 20170722
  2. RANITIDINE. [Concomitant]
     Active Substance: RANITIDINE
     Indication: PROPHYLAXIS
     Dosage: 300 MG,QD
     Route: 048
     Dates: start: 20150628
  3. ALEMTUZUMAB [Suspect]
     Active Substance: ALEMTUZUMAB
     Dosage: 12 MG, QD
     Route: 041
     Dates: start: 20150629, end: 20150703
  4. PREDNISOLONE. [Concomitant]
     Active Substance: PREDNISOLONE
     Dosage: 25 MG,QD
     Route: 048
     Dates: start: 20170722
  5. RANITIDINE. [Concomitant]
     Active Substance: RANITIDINE
     Dosage: 300 MG,QD
     Route: 048
     Dates: start: 20160628, end: 20160712
  6. METHYLPREDNISOLONE. [Concomitant]
     Active Substance: METHYLPREDNISOLONE
     Dosage: 1 G,QD
     Route: 042
     Dates: start: 20160629, end: 20160701
  7. LORATADINE. [Concomitant]
     Active Substance: LORATADINE
     Dosage: 10 MG,QD
     Route: 048
     Dates: start: 20160628, end: 20160712
  8. PARACETAMOL [Concomitant]
     Active Substance: ACETAMINOPHEN
     Dosage: 1 G,QD
     Route: 048
     Dates: start: 20160629, end: 20160701
  9. PARACETAMOL [Concomitant]
     Active Substance: ACETAMINOPHEN
     Indication: PROPHYLAXIS
     Dosage: 6 G,QD
     Route: 048
     Dates: start: 20150629
  10. TEMAZEPAM. [Concomitant]
     Active Substance: TEMAZEPAM
     Indication: PROPHYLAXIS
     Dosage: 10 MG,QD
     Route: 048
     Dates: start: 20160629, end: 20160711
  11. ALEMTUZUMAB [Suspect]
     Active Substance: ALEMTUZUMAB
     Indication: MULTIPLE SCLEROSIS RELAPSE
     Dosage: 12 MG,QD
     Route: 041
     Dates: start: 20160629, end: 20160701
  12. COLOXYL WITH SENNA [Concomitant]
     Active Substance: DOCUSATE\SENNOSIDES
     Indication: PROPHYLAXIS
     Dosage: 2 DF,QD
     Route: 048
     Dates: start: 20170713, end: 20170713
  13. LORATADINE. [Concomitant]
     Active Substance: LORATADINE
     Indication: PROPHYLAXIS
     Dosage: 10 MG,QD
     Route: 048
     Dates: start: 20150628
  14. VALACICLOVIR [Concomitant]
     Active Substance: VALACYCLOVIR HYDROCHLORIDE
     Indication: PROPHYLAXIS
     Dosage: 500 MG,QD
     Route: 048
     Dates: start: 20150628
  15. ERGOCALCIFEROL. [Concomitant]
     Active Substance: ERGOCALCIFEROL
     Indication: PROPHYLAXIS
     Dosage: 1 DF,QD
     Route: 048
     Dates: start: 201502
  16. NATALIZUMAB [Concomitant]
     Active Substance: NATALIZUMAB
     Dosage: UNK
     Route: 065
     Dates: end: 201607

REACTIONS (19)
  - Thyroiditis [Recovered/Resolved]
  - Hypersensitivity vasculitis [Not Recovered/Not Resolved]
  - Tachycardia [Recovered/Resolved]
  - Muscle spasticity [Recovered/Resolved]
  - Headache [Recovered/Resolved]
  - Haematuria [Recovered/Resolved]
  - Flushing [Recovered/Resolved]
  - Fall [Not Recovered/Not Resolved]
  - Weight increased [Not Recovered/Not Resolved]
  - Anaphylactic reaction [Recovered/Resolved]
  - Muscle spasticity [Not Recovered/Not Resolved]
  - Fatigue [Not Recovered/Not Resolved]
  - Dysphagia [Recovered/Resolved]
  - Purpura [Recovered/Resolved]
  - Tachycardia [Recovered/Resolved]
  - Basedow^s disease [Not Recovered/Not Resolved]
  - Hyperthyroidism [Recovered/Resolved]
  - Endocrine ophthalmopathy [Recovering/Resolving]
  - Angioedema [Recovered/Resolved]

NARRATIVE: CASE EVENT DATE: 20160629
